FAERS Safety Report 9712916 (Version 1)
Quarter: 2013Q4

REPORT INFORMATION
  Report Type: Spontaneous
  Country: US (occurrence: None)
  Receive Date: 20131125
  Receipt Date: 20131125
  Transmission Date: 20140711
  Serious: No
  Sender: FDA-Public Use
  Company Number: None

PATIENT
  Sex: Female

DRUGS (1)
  1. FENTYL GENERIC PATCH 75MG MYLAN [Suspect]
     Indication: PAIN
     Dosage: 75MG, Q3DAY, TRANSDERM
     Route: 062
     Dates: start: 20131015

REACTIONS (1)
  - Application site vesicles [None]
